FAERS Safety Report 23343217 (Version 3)
Quarter: 2024Q1

REPORT INFORMATION
  Report Type: Spontaneous
  Country: GB (occurrence: GB)
  Receive Date: 20231227
  Receipt Date: 20240205
  Transmission Date: 20240410
  Serious: Yes (Hospitalization)
  Sender: FDA-Public Use
  Company Number: GB-XEOLAS-UKAF04120231218

PATIENT
  Sex: Male

DRUGS (8)
  1. OMEPRAZOLE [Suspect]
     Active Substance: OMEPRAZOLE
     Indication: Product used for unknown indication
     Dosage: UNK
     Route: 065
  2. OMEPRAZOLE [Suspect]
     Active Substance: OMEPRAZOLE
     Dosage: 7.2 MILLIGRAM
     Route: 048
  3. VITAMINS [Concomitant]
     Active Substance: VITAMINS
     Dosage: UNK
     Route: 065
  4. VITAMINS [Concomitant]
     Active Substance: VITAMINS
     Dosage: 0.6 MILLILITER, QD
     Route: 048
  5. FOLIC ACID [Concomitant]
     Active Substance: FOLIC ACID
     Dosage: UNK
     Route: 065
  6. FOLIC ACID [Concomitant]
     Active Substance: FOLIC ACID
     Dosage: 0.1 MILLIGRAM, QD
     Route: 048
  7. IRON [Concomitant]
     Active Substance: IRON
     Dosage: UNK
     Route: 065
  8. SODIUM FEREDETATE [Concomitant]
     Active Substance: SODIUM FEREDETATE
     Dosage: 5.5 MILLIGRAM, QD
     Route: 048

REACTIONS (11)
  - Oral blood blister [Unknown]
  - Contusion [Recovered/Resolved]
  - Skin discolouration [Unknown]
  - Constipation [Unknown]
  - Mouth haemorrhage [Unknown]
  - Rash macular [Unknown]
  - Hyperhidrosis [Unknown]
  - Lip injury [Unknown]
  - Inguinal hernia [Unknown]
  - Scab [Unknown]
  - Incorrect dose administered [Unknown]

NARRATIVE: CASE EVENT DATE: 20231212
